FAERS Safety Report 18576011 (Version 3)
Quarter: 2022Q1

REPORT INFORMATION
  Report Type: Report from Study
  Country: US (occurrence: US)
  Receive Date: 20201203
  Receipt Date: 20220211
  Transmission Date: 20220423
  Serious: Yes (Hospitalization, Other)
  Sender: FDA-Public Use
  Company Number: US-TAKEDA-2020TUS006945

PATIENT
  Sex: Male
  Weight: 172 kg

DRUGS (2)
  1. PONATINIB [Suspect]
     Active Substance: PONATINIB
     Indication: Chronic myeloid leukaemia
     Dosage: 15 MILLIGRAM, QD
     Route: 065
  2. PONATINIB [Suspect]
     Active Substance: PONATINIB
     Dosage: 15 MILLIGRAM, BID
     Route: 048
     Dates: start: 20190215

REACTIONS (5)
  - Chronic myeloid leukaemia recurrent [Unknown]
  - Hypertension [Unknown]
  - Headache [Unknown]
  - Dizziness [Unknown]
  - Product dose omission issue [Unknown]
